FAERS Safety Report 16462023 (Version 1)
Quarter: 2019Q2

REPORT INFORMATION
  Report Type: Spontaneous
  Country: FR (occurrence: FR)
  Receive Date: 20190621
  Receipt Date: 20190621
  Transmission Date: 20190711
  Serious: Yes (Hospitalization)
  Sender: FDA-Public Use
  Company Number: FR-ALEMBIC PHARMACUETICALS LIMITED-2019SCAL000381

PATIENT

DRUGS (1)
  1. CLONIDINE?HYDROCHLORIDE [Suspect]
     Active Substance: CLONIDINE HYDROCHLORIDE
     Indication: GROWTH DISORDER
     Dosage: 0.15 MILLIGRAM

REACTIONS (7)
  - Hypotension [Recovered/Resolved]
  - Dyspnoea [Recovered/Resolved]
  - Wrong technique in product usage process [Unknown]
  - Miosis [Recovered/Resolved]
  - Somnolence [Recovered/Resolved]
  - Hypertension [Recovered/Resolved]
  - Product administration error [Unknown]
